FAERS Safety Report 10372050 (Version 1)
Quarter: 2014Q3

REPORT INFORMATION
  Report Type: Spontaneous
  Country: US (occurrence: US)
  Receive Date: 20140808
  Receipt Date: 20140808
  Transmission Date: 20150326
  Serious: Yes (Other)
  Sender: FDA-Public Use
  Company Number: US-WATSON-2014-17086

PATIENT
  Age: 57 Year

DRUGS (1)
  1. MINOXIDIL (WATSON LABORATORIES) [Suspect]
     Active Substance: MINOXIDIL
     Indication: PRODUCT USED FOR UNKNOWN INDICATION
     Dosage: UNK, UNKNOWN
     Route: 065

REACTIONS (4)
  - Peritonitis [Unknown]
  - Bloody peritoneal effluent [Unknown]
  - Middle ear effusion [Unknown]
  - Pericarditis [Unknown]
